FAERS Safety Report 7794909-9 (Version None)
Quarter: 2011Q4

REPORT INFORMATION
  Report Type: 
  Country: None (occurrence: None)
  Receive Date: 20111004
  Receipt Date: 20110927
  Transmission Date: 20120403
  Serious: Yes (Hospitalization)
  Sender: FDA-Public Use
  Company Number: PHEH2011US01380

PATIENT
  Sex: Male

DRUGS (6)
  1. CLONAZEPAM [Concomitant]
     Dosage: UNK UKN, UNK
  2. FANAPT [Suspect]
     Dosage: 6 MG, BID
  3. ATIVAN [Concomitant]
     Dosage: UNK UKN, UNK
  4. TRAZODONE HYDROCHLORIDE [Concomitant]
  5. ADDERALL 5 [Suspect]
     Dosage: UNK UKN, UNK
  6. BENADRYL ^ACHE^ [Concomitant]
     Dosage: UNK UKN, UNK

REACTIONS (11)
  - ANXIETY [None]
  - ELECTROCARDIOGRAM ABNORMAL [None]
  - MALAISE [None]
  - STRESS [None]
  - PALPITATIONS [None]
  - DIZZINESS [None]
  - ABDOMINAL DISCOMFORT [None]
  - PANIC ATTACK [None]
  - CHEST PAIN [None]
  - HEADACHE [None]
  - NERVOUSNESS [None]
